FAERS Safety Report 5928317-X (Version None)
Quarter: 2008Q4

REPORT INFORMATION
  Report Type: 
  Country: None (occurrence: None)
  Receive Date: 20081022
  Receipt Date: 20081022
  Transmission Date: 20090506
  Serious: Yes (Hospitalization, Other)
  Sender: FDA-Public Use
  Company Number: None

PATIENT
  Age: 71 Year
  Sex: Male
  Weight: 76.2043 kg

DRUGS (1)
  1. LEVAQUIN [Suspect]
     Indication: PNEUMONIA
     Dosage: 500MG 1X DAY PO
     Route: 048
     Dates: start: 20080731, end: 20080802

REACTIONS (6)
  - FATIGUE [None]
  - JAUNDICE [None]
  - LIVER INJURY [None]
  - MUSCULAR WEAKNESS [None]
  - SKIN REACTION [None]
  - WEIGHT DECREASED [None]
